FAERS Safety Report 18957081 (Version 1)
Quarter: 2021Q1

REPORT INFORMATION
  Report Type: Spontaneous
  Country: US (occurrence: US)
  Receive Date: 20210301
  Receipt Date: 20210301
  Transmission Date: 20210420
  Serious: Yes (Other)
  Sender: FDA-Public Use
  Company Number: None

PATIENT
  Age: 83 Year
  Sex: Female

DRUGS (5)
  1. BAMLANIVIMAB. [Suspect]
     Active Substance: BAMLANIVIMAB
     Indication: COVID-19
     Dosage: ?          OTHER FREQUENCY:ONCE;?
     Route: 042
     Dates: start: 20210209, end: 20210209
  2. ALENDRONATE [Concomitant]
     Active Substance: ALENDRONATE SODIUM
  3. ONDANSETRON [Concomitant]
     Active Substance: ONDANSETRON
  4. DONEPEZIL. [Concomitant]
     Active Substance: DONEPEZIL
  5. AMLODIPINE [Concomitant]
     Active Substance: AMLODIPINE BESYLATE

REACTIONS (1)
  - Nonspecific reaction [None]

NARRATIVE: CASE EVENT DATE: 20210218
